FAERS Safety Report 18564750 (Version 1)
Quarter: 2020Q4

REPORT INFORMATION
  Report Type: Spontaneous
  Country: JP (occurrence: JP)
  Receive Date: 20201201
  Receipt Date: 20201201
  Transmission Date: 20210114
  Serious: Yes (Other)
  Sender: FDA-Public Use
  Company Number: JP-PFIZER INC-2020473619

PATIENT
  Sex: Male

DRUGS (1)
  1. VYNDAQEL [Suspect]
     Active Substance: TAFAMIDIS MEGLUMINE
     Indication: CARDIAC AMYLOIDOSIS
     Dosage: 80 MG
     Route: 048
     Dates: start: 202005

REACTIONS (4)
  - Pyrexia [Recovered/Resolved]
  - Dyspnoea [Unknown]
  - Arrhythmia [Unknown]
  - Fatigue [Unknown]
